FAERS Safety Report 5338437-9 (Version None)
Quarter: 2007Q2

REPORT INFORMATION
  Report Type: 
  Country: None (occurrence: None)
  Receive Date: 20070322
  Receipt Date: 20060125
  Transmission Date: 20071010
  Serious: Yes (Hospitalization)
  Sender: FDA-Public Use
  Company Number: 200514845BCC

PATIENT
  Age: 56 Year
  Sex: Female
  Weight: 73.4827 kg

DRUGS (10)
  1. ALEVE (CAPLET) [Suspect]
     Indication: MYALGIA
     Dosage: 220 MG, ONCE, ORAL
     Route: 048
     Dates: start: 20051203
  2. ALEVE (CAPLET) [Suspect]
     Indication: NEPHROLITHIASIS
     Dosage: 220 MG, ONCE, ORAL
     Route: 048
     Dates: start: 20051203
  3. ALTACE [Concomitant]
  4. CARE ONE ASPIRIN [Concomitant]
  5. FOLIC ACID [Concomitant]
  6. GARLIQUE [Concomitant]
  7. VITAMIN CAP [Concomitant]
  8. ZOLOFT [Concomitant]
  9. ZOCOR [Concomitant]
  10. EXCEDRIN (MIGRAINE) [Concomitant]

REACTIONS (19)
  - ANAPHYLACTIC REACTION [None]
  - ANXIETY [None]
  - DIZZINESS [None]
  - DYSPNOEA [None]
  - ERYTHEMA [None]
  - FACE OEDEMA [None]
  - HYPOAESTHESIA [None]
  - HYPOTENSION [None]
  - LOCALISED OEDEMA [None]
  - MYALGIA [None]
  - NEPHROLITHIASIS [None]
  - OEDEMA [None]
  - OEDEMA PERIPHERAL [None]
  - PRURITUS [None]
  - RASH [None]
  - SYNCOPE [None]
  - TACHYCARDIA [None]
  - THROAT IRRITATION [None]
  - URTICARIA [None]
